FAERS Safety Report 7352223 (Version 2)
Quarter: 2014Q2

REPORT INFORMATION
  Report Type: Spontaneous
  Country: US (occurrence: US)
  Receive Date: 20100412
  Receipt Date: 20140622
  Transmission Date: 20141212
  Serious: Yes (Other)
  Sender: FDA-Public Use
  Company Number: US-ALEXION-A201000144

PATIENT
  Age: 54 Year
  Sex: Female

DRUGS (1)
  1. SOLIRIS 300MG [Suspect]
     Indication: PAROXYSMAL NOCTURNAL HAEMOGLOBINURIA
     Dosage: UNK
     Route: 042
     Dates: end: 20070821

REACTIONS (3)
  - Biopsy bone marrow [Unknown]
  - Packed red blood cell transfusion [Recovered/Resolved]
  - Unevaluable event [Unknown]
